FAERS Safety Report 7115290-4 (Version None)
Quarter: 2010Q4

REPORT INFORMATION
  Report Type: 
  Country: None (occurrence: None)
  Receive Date: 20101122
  Receipt Date: 20101117
  Transmission Date: 20110411
  Serious: Yes (Other)
  Sender: FDA-Public Use
  Company Number: AR-BAXTER-2010BH024705

PATIENT
  Sex: Male

DRUGS (4)
  1. HEMOFIL M [Suspect]
     Indication: FACTOR VIII DEFICIENCY
     Route: 065
  2. HEMOFIL M [Suspect]
     Route: 065
  3. HEMOFIL M [Suspect]
     Route: 065
  4. ANTIHEMOPHILIC FACTOR (HUMAN) [Suspect]
     Indication: FACTOR VIII DEFICIENCY
     Route: 065

REACTIONS (1)
  - HEPATITIS C [None]
